FAERS Safety Report 9416790 (Version 1)
Quarter: 2013Q3

REPORT INFORMATION
  Report Type: Spontaneous
  Country: US (occurrence: US)
  Receive Date: 20130724
  Receipt Date: 20130724
  Transmission Date: 20140515
  Serious: No
  Sender: FDA-Public Use
  Company Number: US-GALDERMA-US13000615

PATIENT
  Age: 25 Year
  Sex: Female

DRUGS (3)
  1. ORACEA (DOXYCYCLINE, USP) CAPSULES 40 MG [Suspect]
     Indication: ROSACEA
     Route: 048
     Dates: start: 20130204, end: 20130212
  2. NUVARING [Concomitant]
     Dates: start: 20121201
  3. ADDERALL [Concomitant]
     Indication: ATTENTION DEFICIT/HYPERACTIVITY DISORDER
     Dates: start: 20120601

REACTIONS (3)
  - Dizziness [Recovered/Resolved]
  - Sudden onset of sleep [Recovered/Resolved]
  - Sleep disorder [Recovered/Resolved]
